FAERS Safety Report 8989089 (Version 4)
Quarter: 2022Q4

REPORT INFORMATION
  Report Type: Spontaneous
  Country: FR (occurrence: FR)
  Receive Date: 20121228
  Receipt Date: 20221005
  Transmission Date: 20230112
  Serious: Yes (Hospitalization, Other)
  Sender: FDA-Public Use
  Company Number: FR-SANOFI-AVENTIS-2012SA094838

PATIENT
  Age: 9 Year
  Sex: Female

DRUGS (10)
  1. AMOXICILLIN\CLAVULANATE POTASSIUM [Suspect]
     Active Substance: AMOXICILLIN\CLAVULANATE POTASSIUM
     Indication: Mediastinal abscess
     Dosage: UNK UNK,UNK
     Dates: start: 20121002, end: 20121005
  2. CLINDAMYCIN PHOSPHATE [Suspect]
     Active Substance: CLINDAMYCIN PHOSPHATE
     Indication: Mediastinal abscess
     Dosage: UNK UNK,UNK
     Dates: start: 20121002, end: 20121024
  3. COLCHICINE [Suspect]
     Active Substance: COLCHICINE
     Indication: Pericarditis
     Dosage: UNK UNK,UNK
     Dates: start: 20121002, end: 20121024
  4. COLCHICINE [Suspect]
     Active Substance: COLCHICINE
     Indication: Staphylococcal abscess
  5. RIFAMPIN [Suspect]
     Active Substance: RIFAMPIN
     Indication: Abscess
     Dosage: UNK UNK,UNK
     Dates: start: 20121025, end: 20121029
  6. AMIKACIN [Suspect]
     Active Substance: AMIKACIN
     Indication: Staphylococcal abscess
     Dosage: UNK UNK,UNK
     Dates: start: 20121002, end: 20121004
  7. ACETAMINOPHEN [Suspect]
     Active Substance: ACETAMINOPHEN
     Indication: Pyrexia
     Dosage: UNK UNK,UNK
     Route: 042
     Dates: start: 20120924, end: 20120925
  8. CODEINE PHOSPHATE [Suspect]
     Active Substance: CODEINE PHOSPHATE
     Indication: Pain
     Dosage: UNK UNK,UNK
     Dates: start: 20120924, end: 20120925
  9. OXACILLIN SODIUM [Suspect]
     Active Substance: OXACILLIN SODIUM
     Indication: Mediastinal abscess
     Dosage: UNK UNK,UNK
     Dates: start: 20121005, end: 20121011
  10. CLOXACILLIN SODIUM [Suspect]
     Active Substance: CLOXACILLIN SODIUM
     Indication: Abscess
     Dosage: UNK UNK,UNK
     Dates: start: 20121011, end: 20121024

REACTIONS (15)
  - Drug reaction with eosinophilia and systemic symptoms [Recovered/Resolved]
  - Face oedema [Recovered/Resolved]
  - Eosinophilia [Recovered/Resolved]
  - Hepatic cytolysis [Recovered/Resolved]
  - Pyrexia [Recovered/Resolved]
  - Pruritus [Recovered/Resolved]
  - Rash [Recovered/Resolved]
  - Heart rate increased [Recovered/Resolved]
  - Malaise [Recovered/Resolved]
  - Asthenia [Recovered/Resolved]
  - Rash maculo-papular [Recovered/Resolved]
  - Cheilitis [Recovered/Resolved]
  - Lymphadenopathy [Recovered/Resolved]
  - Eyelid oedema [Recovered/Resolved]
  - Product use in unapproved indication [Unknown]
